FAERS Safety Report 7254370-X (Version None)
Quarter: 2011Q1

REPORT INFORMATION
  Report Type: 
  Country: None (occurrence: None)
  Receive Date: 20110129
  Receipt Date: 20100324
  Transmission Date: 20110831
  Serious: No
  Sender: FDA-Public Use
  Company Number: US-ABBOTT-10P-163-0622095-00

PATIENT
  Sex: Male
  Weight: 95.794 kg

DRUGS (1)
  1. HUMIRA [Suspect]
     Indication: RHEUMATOID ARTHRITIS
     Route: 058
     Dates: start: 20091203, end: 20100123

REACTIONS (6)
  - URTICARIA [None]
  - INJECTION SITE NODULE [None]
  - PRURITUS [None]
  - LIP SWELLING [None]
  - DYSPNOEA [None]
  - RASH ERYTHEMATOUS [None]
